FAERS Safety Report 21732031 (Version 1)
Quarter: 2022Q4

REPORT INFORMATION
  Report Type: Report from Study
  Country: US (occurrence: US)
  Receive Date: 20221215
  Receipt Date: 20221215
  Transmission Date: 20230113
  Serious: Yes (Other)
  Sender: FDA-Public Use
  Company Number: US-ABBVIE-4237477

PATIENT
  Age: 41 Year
  Sex: Male

DRUGS (1)
  1. GENGRAF [Suspect]
     Active Substance: CYCLOSPORINE
     Indication: Product used for unknown indication
     Dosage: 25MG CAPSULE-2 CAPSULES BY MOUTH IN THE MORNING AND TAKE 2 CAPSULES BY MOUTH EVERY NIGHT
     Route: 048

REACTIONS (2)
  - Peritoneal dialysis [Unknown]
  - Haemodialysis [Unknown]

NARRATIVE: CASE EVENT DATE: 20220901
